FAERS Safety Report 9621201 (Version 2)
Quarter: 2014Q1

REPORT INFORMATION
  Report Type: Report from Study
  Country: CA (occurrence: CA)
  Receive Date: 20131015
  Receipt Date: 20140130
  Transmission Date: 20141002
  Serious: Yes (Hospitalization)
  Sender: FDA-Public Use
  Company Number: CA-ELI_LILLY_AND_COMPANY-CA201310002179

PATIENT
  Age: 75 Year
  Sex: Female
  Weight: 95 kg

DRUGS (24)
  1. GEMCITABINE HYDROCHLORIDE [Suspect]
     Indication: LYMPHOMA
     Dosage: 1501 MG, QD
     Route: 042
     Dates: start: 20130823
  2. OTHER PHARMA COMPANY INV DRUG [Suspect]
     Indication: NON-HODGKIN^S LYMPHOMA
     Dosage: 2.8 MG, DAY 2 OF A 28 DAY CYCLE
     Route: 042
     Dates: start: 20130315, end: 20130809
  3. RITUXIMAB [Suspect]
     Indication: NON-HODGKIN^S LYMPHOMA
     Dosage: 775 MG, DAY 1 OF A 28 DAY CYCLE
     Dates: start: 20130314, end: 20130808
  4. DEXAMETHASONE [Suspect]
     Indication: LYMPHOMA
     Dosage: 12 MG, QD
     Route: 048
     Dates: start: 20130823
  5. CISPLATIN PHARMACIA [Suspect]
     Indication: LYMPHOMA
     Dosage: UNK UNK, QD
     Dates: start: 20130823
  6. PANTOPRAZOLE [Concomitant]
     Dosage: UNK
     Dates: start: 1985
  7. SYNTHROID [Concomitant]
     Dosage: UNK
     Dates: start: 1985
  8. FUROSEMIDE [Concomitant]
     Dosage: UNK
     Dates: start: 2007
  9. VITAMIN D [Concomitant]
     Dosage: UNK
     Dates: start: 2010
  10. GLUCOSAMINE CHONDROITIN [Concomitant]
     Dosage: UNK
     Dates: start: 1996
  11. COD-LIVER OIL [Concomitant]
     Dosage: UNK
     Dates: start: 1996
  12. CORAL CALCIUM [Concomitant]
     Dosage: UNK
     Dates: start: 1996
  13. ASPIRIN [Concomitant]
     Dosage: UNK
     Dates: start: 2007
  14. BETAHISTINE [Concomitant]
     Dosage: UNK
     Dates: start: 2002
  15. SENOKOT [Concomitant]
     Dosage: UNK
  16. DOCUSATE SODIUM [Concomitant]
     Dosage: UNK
     Dates: start: 2011
  17. VITAMIN C [Concomitant]
     Dosage: UNK
     Dates: start: 2001
  18. ATIVAN [Concomitant]
     Dosage: UNK
     Dates: start: 2013
  19. ALEVE [Concomitant]
     Dosage: UNK
     Dates: start: 2010
  20. CODEINE [Concomitant]
     Dosage: UNK
     Dates: start: 20130621
  21. OXYGEN [Concomitant]
     Dosage: UNK
     Dates: start: 201308, end: 201309
  22. ONDANSETRON [Concomitant]
     Dosage: UNK
     Dates: start: 20130823, end: 20130825
  23. NORMAL SALINE [Concomitant]
     Dosage: UNK
     Dates: start: 20130823
  24. MANNITOL [Concomitant]
     Dosage: 50000 MG, QD
     Route: 042
     Dates: start: 20130823

REACTIONS (1)
  - Dehydration [Recovered/Resolved]
